FAERS Safety Report 20165898 (Version 1)
Quarter: 2021Q4

REPORT INFORMATION
  Report Type: Spontaneous
  Country: IN (occurrence: None)
  Receive Date: 20211208
  Receipt Date: 20211208
  Transmission Date: 20220303
  Serious: Yes (Disabling, Other)
  Sender: FDA-Public Use
  Company Number: None

PATIENT
  Age: 20 Year
  Sex: Male
  Weight: 48 kg

DRUGS (1)
  1. MINOXIDIL 5% (FOR MEN) [Suspect]
     Active Substance: MINOXIDIL
     Indication: Alopecia
     Dosage: OTHER QUANTITY : 5 DROP(S);?FREQUENCY : DAILY;?
     Route: 061

REACTIONS (4)
  - Erectile dysfunction [None]
  - Libido decreased [None]
  - Spermatozoa abnormal [None]
  - Penile size reduced [None]

NARRATIVE: CASE EVENT DATE: 20200804
